FAERS Safety Report 4268114-7 (Version None)
Quarter: 2004Q1

REPORT INFORMATION
  Report Type: 
  Country: None (occurrence: None)
  Receive Date: 20040109
  Receipt Date: 20040109
  Transmission Date: 20041129
  Serious: Yes (Other)
  Sender: FDA-Public Use
  Company Number: None

PATIENT
  Age: 47 Year
  Sex: Female
  Weight: 73.9363 kg

DRUGS (2)
  1. TOPAMAX [Suspect]
     Indication: INSULIN RESISTANCE
     Dosage: 25 1 ORAL
     Route: 048
     Dates: start: 20031228, end: 20040104
  2. TOPAMAX [Suspect]
     Indication: OBESITY
     Dosage: 25 1 ORAL
     Route: 048
     Dates: start: 20031228, end: 20040104

REACTIONS (5)
  - ASTHENOPIA [None]
  - DIZZINESS [None]
  - FATIGUE [None]
  - MOOD SWINGS [None]
  - PREMENSTRUAL SYNDROME [None]
